FAERS Safety Report 6420106-5 (Version None)
Quarter: 2009Q4

REPORT INFORMATION
  Report Type: 
  Country: None (occurrence: None)
  Receive Date: 20091027
  Receipt Date: 20091012
  Transmission Date: 20100525
  Serious: Yes (Disabling)
  Sender: FDA-Public Use
  Company Number: 8052370

PATIENT
  Age: 39 Year
  Sex: Female

DRUGS (4)
  1. KEPPRA [Suspect]
     Indication: EPILEPSY
     Dosage: D PO
     Route: 048
     Dates: start: 20080101
  2. KEPPRA [Suspect]
     Indication: EPILEPSY
     Dosage: D PO
     Route: 048
  3. KEPPRA [Suspect]
     Indication: EPILEPSY
     Dosage: 500 MG 2 D PO
     Route: 048
     Dates: start: 20080601
  4. URBANYL [Concomitant]

REACTIONS (2)
  - GAIT DISTURBANCE [None]
  - MYALGIA [None]
